FAERS Safety Report 7513535-X (Version None)
Quarter: 2011Q2

REPORT INFORMATION
  Report Type: 
  Country: None (occurrence: None)
  Receive Date: 20110520
  Receipt Date: 20110506
  Transmission Date: 20111010
  Serious: Yes (Hospitalization, Other)
  Sender: FDA-Public Use
  Company Number: 2011-1147

PATIENT
  Age: 37 Year
  Sex: Female
  Weight: 113.4 kg

DRUGS (6)
  1. SOMATULINE DEPOT [Suspect]
     Indication: ACROMEGALY
     Dosage: 60 MG (60 MG, 1 IN 1 M),
     Dates: start: 20090701, end: 20100301
  2. CLARITIN [Concomitant]
  3. VITAMIN D [Concomitant]
  4. LOESTRIN (ANOVLAR) [Concomitant]
  5. SYNTHROID [Concomitant]
  6. ZOLOFT [Concomitant]

REACTIONS (6)
  - CHOLECYSTITIS INFECTIVE [None]
  - HYPOTHYROIDISM [None]
  - WEIGHT INCREASED [None]
  - BLOOD GROWTH HORMONE DECREASED [None]
  - VITAMIN D DECREASED [None]
  - FATIGUE [None]
